FAERS Safety Report 10479502 (Version 1)
Quarter: 2014Q3

REPORT INFORMATION
  Report Type: Spontaneous
  Country: FR (occurrence: FR)
  Receive Date: 20140926
  Receipt Date: 20140926
  Transmission Date: 20150326
  Serious: Yes (Life-Threatening, Hospitalization)
  Sender: FDA-Public Use
  Company Number: FR-009507513-1409FRA012205

PATIENT
  Age: 60 Year
  Sex: Female
  Weight: 95 kg

DRUGS (17)
  1. EMEND [Suspect]
     Active Substance: APREPITANT
     Dosage: 80 MG, QD; IN THE MORNING AT 08:00AM, 80 MG PER DAY ON DAY 1, DAY 2, DAY 3 (01-,02- AND 03-AUG).
     Route: 048
     Dates: start: 20140801, end: 20140803
  2. CORDARONE [Suspect]
     Active Substance: AMIODARONE HYDROCHLORIDE
     Dosage: 200 MG, QD
     Route: 048
     Dates: start: 20140730, end: 20140811
  3. ETOPOPHOS [Concomitant]
     Active Substance: ETOPOSIDE PHOSPHATE
     Dosage: 100 MG/M2/DAY LET 200 MG PER DAY ON DAY 1 AND DAY 2
     Route: 042
     Dates: start: 20140801, end: 20140803
  4. MESNA. [Concomitant]
     Active Substance: MESNA
     Dosage: RECOMMENDED DOSES
     Route: 042
     Dates: start: 20140801, end: 20140803
  5. BACTRIM [Concomitant]
     Active Substance: SULFAMETHOXAZOLE\TRIMETHOPRIM
  6. METHYLPREDNISOLONE [Concomitant]
     Active Substance: METHYLPREDNISOLONE
     Dosage: 80 MG, UNK
     Route: 042
  7. PLITICAN [Concomitant]
     Active Substance: ALIZAPRIDE HYDROCHLORIDE
     Dosage: 1 DF, TID
     Route: 042
     Dates: start: 20140731
  8. PERFALGAN [Concomitant]
     Active Substance: ACETAMINOPHEN
     Dosage: 1 G, UNK
  9. INNOHEP [Concomitant]
     Active Substance: TINZAPARIN SODIUM
     Dosage: 0.8 ML, QD
     Route: 058
  10. ZOPHREN (ONDANSETRON HYDROCHLORIDE) [Concomitant]
     Active Substance: ONDANSETRON HYDROCHLORIDE
     Dosage: 8 MG, BID
     Route: 042
     Dates: start: 20140731
  11. MABTHERA [Concomitant]
     Active Substance: RITUXIMAB
     Dosage: 375 MG/M2 IE750 MG ON DAY 1
     Route: 042
     Dates: start: 20140801, end: 20140803
  12. MESNA. [Concomitant]
     Active Substance: MESNA
     Dosage: RECOMMENDED DOSES
     Route: 048
     Dates: start: 20140801, end: 20140803
  13. HOLOXAN [Suspect]
     Active Substance: IFOSFAMIDE
     Dosage: 5000 MG/M2 UNIQUE INTAKE/5 G/M2 IE 10 G ON DAY 2
     Route: 042
     Dates: start: 20140802, end: 20140802
  14. POLARAMINE [Concomitant]
     Active Substance: DEXCHLORPHENIRAMINE MALEATE
     Dosage: 5 MG, UNK
     Dates: start: 20140801, end: 20140803
  15. ZELITREX [Concomitant]
     Active Substance: VALACYCLOVIR HYDROCHLORIDE
  16. CARBOPLATIN. [Concomitant]
     Active Substance: CARBOPLATIN
     Dosage: 610 MG ON DAY 2, 300 MG/M2
     Route: 042
     Dates: start: 20140801, end: 20140803
  17. INEXIUM (ESOMEPRAZOLE MAGNESIUM) [Concomitant]
     Active Substance: ESOMEPRAZOLE MAGNESIUM
     Dosage: 20 MG, QD

REACTIONS (2)
  - Convulsion [Recovered/Resolved]
  - Encephalopathy [Recovered/Resolved]

NARRATIVE: CASE EVENT DATE: 20140803
